FAERS Safety Report 12331385 (Version 1)
Quarter: 2016Q2

REPORT INFORMATION
  Report Type: Spontaneous
  Country: US (occurrence: None)
  Receive Date: 20160503
  Receipt Date: 20160503
  Transmission Date: 20160815
  Serious: Yes (Other)
  Sender: FDA-Public Use
  Company Number: None

PATIENT
  Age: 43 Year
  Sex: Female
  Weight: 104.33 kg

DRUGS (6)
  1. MULTI VITAMINS [Concomitant]
  2. CALCIUM [Concomitant]
     Active Substance: CALCIUM
  3. MIRENA [Suspect]
     Active Substance: LEVONORGESTREL
  4. BIOTIN [Concomitant]
     Active Substance: BIOTIN
  5. VITAMIN D [Concomitant]
     Active Substance: CHOLECALCIFEROL
  6. VITAMIN B12 [Concomitant]
     Active Substance: CYANOCOBALAMIN

REACTIONS (3)
  - Haemorrhage [None]
  - Alopecia [None]
  - Muscle spasms [None]

NARRATIVE: CASE EVENT DATE: 20160201
